FAERS Safety Report 4379851-8 (Version None)
Quarter: 2004Q2

REPORT INFORMATION
  Report Type: 
  Country: None (occurrence: None)
  Receive Date: 20040614
  Receipt Date: 20040514
  Transmission Date: 20050107
  Serious: Yes (Life-Threatening, Hospitalization, Disabling)
  Sender: FDA-Public Use
  Company Number: RB-725-2004

PATIENT
  Age: 26 Year
  Sex: Male

DRUGS (2)
  1. BUPRENORPHINE HCL [Suspect]
     Indication: DRUG DEPENDENCE
     Dosage: 14 MG IV
     Route: 042
     Dates: start: 20030929
  2. BENZODIAZEPINE [Concomitant]

REACTIONS (4)
  - ABSCESS [None]
  - DEEP VEIN THROMBOSIS [None]
  - HAEMATOMA [None]
  - INTENTIONAL MISUSE [None]
